FAERS Safety Report 25093888 (Version 1)
Quarter: 2025Q1

REPORT INFORMATION
  Report Type: Spontaneous
  Country: US (occurrence: US)
  Receive Date: 20250319
  Receipt Date: 20250319
  Transmission Date: 20250408
  Serious: No
  Sender: TEVA
  Company Number: US-TEVA-VS-3305695

PATIENT
  Age: 79 Year
  Sex: Male

DRUGS (1)
  1. BUPRENORPHINE [Suspect]
     Active Substance: BUPRENORPHINE
     Indication: Product used for unknown indication
     Route: 062
     Dates: start: 202404

REACTIONS (2)
  - Application site rash [Unknown]
  - Application site erythema [Unknown]
